FAERS Safety Report 5890032-9 (Version None)
Quarter: 2008Q3

REPORT INFORMATION
  Report Type: 
  Country: None (occurrence: None)
  Receive Date: 20080919
  Receipt Date: 20080909
  Transmission Date: 20090109
  Serious: Yes (Death, Other)
  Sender: FDA-Public Use
  Company Number: IT-PFIZER INC-2008055500

PATIENT
  Sex: Male

DRUGS (3)
  1. VIAGRA [Suspect]
     Indication: PROSTATECTOMY
     Dosage: DAILY DOSE:100MG
     Route: 048
     Dates: start: 20050101, end: 20080622
  2. OLMESARTAN MEDOXOMIL [Interacting]
     Indication: HYPERTENSION
     Route: 048
     Dates: start: 20080417, end: 20080622
  3. HYDROCHLOROTHIAZIDE/OLMESARTAN [Interacting]
     Indication: HYPERTENSION
     Route: 048
     Dates: start: 20080417, end: 20080622

REACTIONS (3)
  - DRUG INTERACTION [None]
  - SUDDEN DEATH [None]
  - SYNCOPE [None]
